FAERS Safety Report 20547007 (Version 1)
Quarter: 2022Q1

REPORT INFORMATION
  Report Type: Spontaneous
  Country: US (occurrence: US)
  Receive Date: 20220303
  Receipt Date: 20220303
  Transmission Date: 20220424
  Serious: No
  Sender: FDA-Public Use
  Company Number: US-009507513-2203USA000374

PATIENT
  Age: 86 Year
  Sex: Male

DRUGS (1)
  1. NOXAFIL [Suspect]
     Active Substance: POSACONAZOLE
     Indication: Pneumonia
     Dosage: 300 MILLIGRAM, QD

REACTIONS (2)
  - Product use issue [Unknown]
  - Product use in unapproved indication [Unknown]
